FAERS Safety Report 6975032-X (Version None)
Quarter: 2010Q3

REPORT INFORMATION
  Report Type: 
  Country: None (occurrence: None)
  Receive Date: 20100910
  Receipt Date: 20090114
  Transmission Date: 20110219
  Serious: No
  Sender: FDA-Public Use
  Company Number: US-WYE-H07710409

PATIENT
  Sex: Female
  Weight: 50.85 kg

DRUGS (3)
  1. PRISTIQ [Suspect]
     Indication: DEPRESSION
     Route: 048
     Dates: start: 20081101
  2. SIMVASTATIN [Concomitant]
  3. XANAX [Concomitant]

REACTIONS (5)
  - CANDIDIASIS [None]
  - DRUG WITHDRAWAL SYNDROME [None]
  - NIGHTMARE [None]
  - RASH ERYTHEMATOUS [None]
  - RASH PRURITIC [None]
